FAERS Safety Report 14953027 (Version 5)
Quarter: 2021Q2

REPORT INFORMATION
  Report Type: Report from Study
  Country: KR (occurrence: KR)
  Receive Date: 20180530
  Receipt Date: 20210519
  Transmission Date: 20210716
  Serious: Yes (Death, Hospitalization)
  Sender: FDA-Public Use
  Company Number: KR-ELI_LILLY_AND_COMPANY-KR201805013858

PATIENT
  Age: 62 Year
  Sex: Male
  Weight: 72 kg

DRUGS (17)
  1. URSODEOXYCHOLIC ACID [Concomitant]
     Active Substance: URSODIOL
     Indication: HEPATIC CIRRHOSIS
     Dosage: UNK
     Dates: start: 20180220, end: 20180523
  2. AMITRIPTYLINE [Concomitant]
     Active Substance: AMITRIPTYLINE
     Indication: NEUROTOXICITY
     Dosage: UNK
     Dates: start: 20180508, end: 20180523
  3. COBAMAMIDE [Concomitant]
     Active Substance: COBAMAMIDE
     Indication: VITAMIN SUPPLEMENTATION
     Dosage: UNK
     Dates: start: 20180517, end: 20180517
  4. CARDUUS MARIANUS (HOMEOPATHIC TINCTURE) [Concomitant]
     Active Substance: HOMEOPATHICS
     Indication: HEPATIC CIRRHOSIS
     Dosage: UNK, UNKNOWN
     Dates: start: 20171116, end: 20180523
  5. MEGESTROL ACETATE. [Concomitant]
     Active Substance: MEGESTROL ACETATE
     Indication: DECREASED APPETITE
     Dosage: UNK
     Dates: start: 20180320, end: 20180523
  6. CHLORPHENAMINE MALEATE [Concomitant]
     Active Substance: CHLORPHENIRAMINE MALEATE
     Indication: PREMEDICATION
     Dosage: UNK
     Dates: start: 20180517, end: 20180517
  7. NORZYME [Concomitant]
     Indication: DYSPEPSIA
     Dosage: UNK
     Dates: start: 20180220, end: 20180523
  8. HEPARIN SODIUM. [Concomitant]
     Active Substance: HEPARIN SODIUM
     Indication: IRRIGATION THERAPY
     Dosage: UNK
     Dates: start: 20180517, end: 20180517
  9. FUROSEMIDE. [Concomitant]
     Active Substance: FUROSEMIDE
     Indication: ASCITES
     Dosage: UNK
     Dates: start: 20180320, end: 20180523
  10. ASCORBIC [Concomitant]
     Indication: VITAMIN SUPPLEMENTATION
     Dosage: UNK
     Dates: start: 20180517, end: 20180517
  11. PALONOSETRON. [Concomitant]
     Active Substance: PALONOSETRON HYDROCHLORIDE
     Indication: PROPHYLAXIS OF NAUSEA AND VOMITING
     Dosage: UNK
     Dates: start: 20180517, end: 20180517
  12. RAMUCIRUMAB [Suspect]
     Active Substance: RAMUCIRUMAB
     Indication: GASTRIC CANCER
     Dosage: 500 MG, CYCLICAL
     Route: 042
     Dates: start: 20180510, end: 20180510
  13. DEXAMETHASONE DISODIUM PHOSPHATE [Concomitant]
     Active Substance: DEXAMETHASONE SODIUM PHOSPHATE
     Indication: PREMEDICATION
     Dosage: UNK
     Dates: start: 20180517, end: 20180517
  14. RANITIDINE HCL [Concomitant]
     Active Substance: RANITIDINE HYDROCHLORIDE
     Indication: PREMEDICATION
     Dosage: UNK
     Dates: start: 20180517, end: 20180517
  15. SPIRONOLACTON [Concomitant]
     Active Substance: SPIRONOLACTONE
     Indication: ASCITES
     Dosage: UNK
     Dates: start: 20180508, end: 20180523
  16. PACLITAXEL. [Concomitant]
     Active Substance: PACLITAXEL
     Indication: GASTRIC CANCER
     Dosage: 140 MG, CYCLICAL
     Route: 042
     Dates: start: 20180510, end: 20180517
  17. FOLIC ACID. [Concomitant]
     Active Substance: FOLIC ACID
     Indication: ANAEMIA
     Dosage: UNK
     Dates: start: 20180320, end: 20180523

REACTIONS (2)
  - Neutropenia [Not Recovered/Not Resolved]
  - Septic shock [Fatal]

NARRATIVE: CASE EVENT DATE: 20180523
